FAERS Safety Report 7989554-6 (Version None)
Quarter: 2011Q4

REPORT INFORMATION
  Report Type: 
  Country: None (occurrence: None)
  Receive Date: 20111219
  Receipt Date: 20111012
  Transmission Date: 20120403
  Serious: No
  Sender: FDA-Public Use
  Company Number: US-ASTRAZENECA-2011SE61374

PATIENT
  Age: 59 Year
  Sex: Female
  Weight: 67.1 kg

DRUGS (5)
  1. SYNTHROID [Concomitant]
  2. WELLBUTRIN [Concomitant]
  3. KLONOPIN [Concomitant]
  4. IMITREX [Concomitant]
  5. CRESTOR [Suspect]
     Route: 048
     Dates: start: 20110301

REACTIONS (9)
  - FEELING ABNORMAL [None]
  - PAIN [None]
  - SOMNOLENCE [None]
  - FATIGUE [None]
  - CONSTIPATION [None]
  - INAPPROPRIATE SCHEDULE OF DRUG ADMINISTRATION [None]
  - NAUSEA [None]
  - ABDOMINAL DISTENSION [None]
  - MALAISE [None]
